FAERS Safety Report 11663544 (Version 1)
Quarter: 2015Q4

REPORT INFORMATION
  Report Type: Spontaneous
  Country: CA (occurrence: None)
  Receive Date: 20151026
  Receipt Date: 20151026
  Transmission Date: 20160304
  Serious: Yes (Other)
  Sender: FDA-Public Use
  Company Number: None

PATIENT
  Age: 49 Year
  Sex: Female
  Weight: 53.98 kg

DRUGS (5)
  1. LURASIDONE HCL [Suspect]
     Active Substance: LURASIDONE
     Indication: BIPOLAR DISORDER
     Route: 048
     Dates: start: 20150911, end: 20151022
  2. MODAFINIL. [Concomitant]
     Active Substance: MODAFINIL
  3. GABAPENTIN. [Concomitant]
     Active Substance: GABAPENTIN
  4. MOCLOBEMIDE [Concomitant]
     Active Substance: MOCLOBEMIDE
  5. ARIPIPRAZOLE. [Concomitant]
     Active Substance: ARIPIPRAZOLE

REACTIONS (2)
  - Erythema multiforme [None]
  - Urticaria [None]

NARRATIVE: CASE EVENT DATE: 20151022
